FAERS Safety Report 6851896-5 (Version None)
Quarter: 2010Q3

REPORT INFORMATION
  Report Type: 
  Country: None (occurrence: None)
  Receive Date: 20100717
  Receipt Date: 20080528
  Transmission Date: 20110219
  Serious: No
  Sender: FDA-Public Use
  Company Number: US-PFIZER INC-2008007591

PATIENT
  Sex: Female
  Weight: 62.14 kg

DRUGS (15)
  1. CHANTIX [Suspect]
     Indication: SMOKING CESSATION THERAPY
     Route: 048
     Dates: start: 20080112
  2. ACETYLSALICYLIC ACID [Concomitant]
  3. VALSARTAN [Concomitant]
  4. ZOLOFT [Concomitant]
  5. LAMICTAL [Concomitant]
  6. XANAX [Concomitant]
  7. CRESTOR [Concomitant]
  8. METOPROLOL [Concomitant]
  9. POTASSIUM CHLORIDE [Concomitant]
  10. MULTI-VITAMINS [Concomitant]
  11. FUROSEMIDE [Concomitant]
  12. REQUIP [Concomitant]
  13. PREMARIN [Concomitant]
  14. ZETIA [Concomitant]
  15. AMBIEN [Concomitant]

REACTIONS (1)
  - NAUSEA [None]
